FAERS Safety Report 10170761 (Version 1)
Quarter: 2014Q2

REPORT INFORMATION
  Report Type: Spontaneous
  Country: IT (occurrence: IT)
  Receive Date: 20140514
  Receipt Date: 20140514
  Transmission Date: 20141212
  Serious: Yes (Other)
  Sender: FDA-Public Use
  Company Number: IT-ACCORD-023616

PATIENT
  Age: 67 Year
  Sex: Male

DRUGS (3)
  1. FLUOROURACIL ACCORD [Suspect]
     Indication: OESOPHAGEAL CARCINOMA
     Dosage: PATIENT TOOK DRUG ON 25-MAR-2014.
     Route: 042
     Dates: start: 20140325
  2. EPIRUBICIN [Suspect]
     Indication: OESOPHAGEAL CARCINOMA
     Dosage: PATIENT TOOK DRUG ON 25-MAR-2014.
     Route: 042
     Dates: start: 20140325
  3. OXALIPLATIN [Suspect]
     Indication: OESOPHAGEAL CARCINOMA
     Route: 042
     Dates: start: 20140325, end: 20140325

REACTIONS (5)
  - Hyperbilirubinaemia [Recovering/Resolving]
  - Thrombocytopenia [Recovering/Resolving]
  - Off label use [Unknown]
  - Anaemia [Recovering/Resolving]
  - Neutropenia [Recovering/Resolving]
